FAERS Safety Report 13243350 (Version 1)
Quarter: 2017Q1

REPORT INFORMATION
  Report Type: Spontaneous
  Country: JP (occurrence: JP)
  Receive Date: 20170217
  Receipt Date: 20170217
  Transmission Date: 20170428
  Serious: Yes (Hospitalization)
  Sender: FDA-Public Use
  Company Number: JP-PFIZER INC-2017065820

PATIENT

DRUGS (2)
  1. SELARA [Suspect]
     Active Substance: EPLERENONE
  2. SPIRONOLACTONE. [Interacting]
     Active Substance: SPIRONOLACTONE

REACTIONS (2)
  - Labelled drug-drug interaction medication error [Unknown]
  - Osteoarthritis [Unknown]
